FAERS Safety Report 4334924-0 (Version None)
Quarter: 2004Q2

REPORT INFORMATION
  Report Type: 
  Country: None (occurrence: None)
  Receive Date: 20040408
  Receipt Date: 20040402
  Transmission Date: 20050107
  Serious: Yes (Other)
  Sender: FDA-Public Use
  Company Number: US-MERCK-0404USA00192

PATIENT

DRUGS (2)
  1. AMIODARONE [Suspect]
     Route: 065
  2. ZOCOR [Suspect]
     Route: 048

REACTIONS (1)
  - RENAL FAILURE ACUTE [None]
